FAERS Safety Report 15343325 (Version 1)
Quarter: 2018Q3

REPORT INFORMATION
  Report Type: Spontaneous
  Country: US (occurrence: US)
  Receive Date: 20180903
  Receipt Date: 20180903
  Transmission Date: 20181010
  Serious: Yes (Hospitalization, Other)
  Sender: FDA-Public Use
  Company Number: US-ROCHE-2176536

PATIENT
  Age: 68 Year
  Sex: Female
  Weight: 71.73 kg

DRUGS (10)
  1. PREDNISONE. [Concomitant]
     Active Substance: PREDNISONE
     Indication: IMMUNE THROMBOCYTOPENIC PURPURA
     Dosage: 2.5 M/D DAILY
     Route: 048
     Dates: end: 20180522
  2. DELTASONE [Concomitant]
     Active Substance: PREDNISONE
     Dosage: 1MG DAILY OR MORE 90 MG DAILY
     Route: 065
  3. THYROID [Concomitant]
     Active Substance: LEVOTHYROXINE\LIOTHYRONINE
     Dosage: DAILY
     Route: 048
  4. PREDNISONE. [Concomitant]
     Active Substance: PREDNISONE
     Route: 048
  5. NEXIUM [Concomitant]
     Active Substance: ESOMEPRAZOLE MAGNESIUM
     Indication: GASTROOESOPHAGEAL REFLUX DISEASE
     Dosage: DAILY
     Route: 065
  6. RITUXAN [Suspect]
     Active Substance: RITUXIMAB
     Indication: IMMUNE THROMBOCYTOPENIC PURPURA
     Route: 042
     Dates: start: 20180501, end: 20180508
  7. REGLAN [Concomitant]
     Active Substance: METOCLOPRAMIDE HYDROCHLORIDE
     Dosage: PRN
     Route: 065
  8. ZOFRAN [Concomitant]
     Active Substance: ONDANSETRON HYDROCHLORIDE
     Dosage: PRN
     Route: 065
  9. DIAZEPAM. [Suspect]
     Active Substance: DIAZEPAM
     Indication: ANXIETY
     Route: 065
     Dates: start: 20180522
  10. BENADRYL [Concomitant]
     Active Substance: DIPHENHYDRAMINE HYDROCHLORIDE

REACTIONS (19)
  - Hypovolaemia [Unknown]
  - Pleural effusion [Unknown]
  - Serum sickness [Recovered/Resolved with Sequelae]
  - Off label use [Unknown]
  - Spinal osteoarthritis [Unknown]
  - Pyrexia [Unknown]
  - Immunosuppression [Unknown]
  - Aortic arteriosclerosis [Unknown]
  - Asthenia [Recovered/Resolved with Sequelae]
  - Pelvic cyst [Unknown]
  - Nausea [Recovered/Resolved with Sequelae]
  - Acute kidney injury [Unknown]
  - Lactic acidosis [Unknown]
  - Dizziness [Recovered/Resolved with Sequelae]
  - Hallucination [Recovered/Resolved with Sequelae]
  - Sepsis [Unknown]
  - Intentional product use issue [Unknown]
  - Dehydration [Unknown]
  - Atelectasis [Unknown]

NARRATIVE: CASE EVENT DATE: 20180514
